FAERS Safety Report 8773220 (Version 1)
Quarter: 2012Q4

REPORT INFORMATION
  Report Type: 
  Country: US (occurrence: US)
  Receive Date: 20120912
  Receipt Date: 20120912
  Transmission Date: 20130627
  Serious: No
  Sender: FDA-Public Use
  Company Number: US-PFIZER INC-2012220332

PATIENT
  Age: 37 Year
  Sex: Male
  Weight: 102.95 kg

DRUGS (1)
  1. NICOTROL INHALER [Suspect]
     Indication: SMOKING CESSATION THERAPY
     Dosage: 4 mg, as needed
     Route: 048
     Dates: start: 20120906

REACTIONS (4)
  - Cough [Recovered/Resolved]
  - Throat irritation [Recovered/Resolved]
  - Abdominal discomfort [Recovered/Resolved]
  - Lung disorder [Unknown]
